FAERS Safety Report 18223559 (Version 1)
Quarter: 2020Q3

REPORT INFORMATION
  Report Type: Spontaneous
  Country: US (occurrence: US)
  Receive Date: 20200902
  Receipt Date: 20200902
  Transmission Date: 20201103
  Serious: No
  Sender: FDA-Public Use
  Company Number: None

PATIENT
  Age: 59 Year
  Sex: Male

DRUGS (1)
  1. ENBREL [Suspect]
     Active Substance: ETANERCEPT
     Indication: RHEUMATOID ARTHRITIS
     Route: 030
     Dates: start: 20200805, end: 20200902

REACTIONS (3)
  - Headache [None]
  - Abdominal pain upper [None]
  - Nausea [None]

NARRATIVE: CASE EVENT DATE: 20200902
